FAERS Safety Report 10619526 (Version 1)
Quarter: 2014Q4

REPORT INFORMATION
  Report Type: Spontaneous
  Country: US (occurrence: None)
  Receive Date: 20141201
  Receipt Date: 20141201
  Transmission Date: 20150529
  Serious: Yes (Disabling)
  Sender: FDA-Public Use
  Company Number: None

PATIENT
  Age: 41 Year
  Sex: Male
  Weight: 80.74 kg

DRUGS (1)
  1. MINOXIDIL FOAM [Suspect]
     Active Substance: MINOXIDIL
     Indication: ALOPECIA
     Dates: start: 20111126, end: 20141026

REACTIONS (10)
  - Sinusitis [None]
  - Fatigue [None]
  - Urethritis [None]
  - Testicular pain [None]
  - Listless [None]
  - Anxiety [None]
  - Headache [None]
  - Loss of libido [None]
  - Erectile dysfunction [None]
  - Ejaculation disorder [None]
